FAERS Safety Report 10013639 (Version 2)
Quarter: 2014Q1

REPORT INFORMATION
  Report Type: Spontaneous
  Country: US (occurrence: US)
  Receive Date: 20140315
  Receipt Date: 20140325
  Transmission Date: 20141002
  Serious: No
  Sender: FDA-Public Use
  Company Number: US-009507513-1403USA001354

PATIENT
  Age: 45 Year
  Sex: Female
  Weight: 82.99 kg

DRUGS (2)
  1. OXYTROL FOR WOMEN [Suspect]
     Indication: HYPERTONIC BLADDER
     Dosage: 1 DF, Q4D
     Route: 062
     Dates: start: 20140211, end: 201403
  2. OXYTROL FOR WOMEN [Suspect]
     Indication: POLLAKIURIA

REACTIONS (4)
  - Lymphadenopathy [Unknown]
  - Pain [Not Recovered/Not Resolved]
  - Off label use [Unknown]
  - Drug ineffective [Unknown]
